FAERS Safety Report 23049012 (Version 1)
Quarter: 2023Q4

REPORT INFORMATION
  Report Type: Other
  Country: MX (occurrence: MX)
  Receive Date: 20231010
  Receipt Date: 20231010
  Transmission Date: 20240110
  Serious: Yes (Other)
  Sender: FDA-Public Use
  Company Number: MX-Bion-012195

PATIENT
  Age: 34 Year
  Sex: Female

DRUGS (1)
  1. DICLOFENAC POTASSIUM [Suspect]
     Active Substance: DICLOFENAC POTASSIUM
     Indication: Product used for unknown indication
     Route: 030

REACTIONS (1)
  - Embolia cutis medicamentosa [Unknown]
